FAERS Safety Report 7177317-3 (Version None)
Quarter: 2010Q4

REPORT INFORMATION
  Report Type: 
  Country: None (occurrence: None)
  Receive Date: 20101220
  Receipt Date: 20101209
  Transmission Date: 20110411
  Serious: Yes (Other)
  Sender: FDA-Public Use
  Company Number: US-SANOFI-AVENTIS-2010SA075326

PATIENT

DRUGS (3)
  1. MULTAQ [Suspect]
     Route: 065
  2. LIPITOR [Suspect]
     Route: 065
  3. LIPITOR [Suspect]
     Route: 065

REACTIONS (1)
  - LIVER FUNCTION TEST ABNORMAL [None]
